FAERS Safety Report 4356898-9 (Version None)
Quarter: 2004Q2

REPORT INFORMATION
  Report Type: 
  Country: None (occurrence: None)
  Receive Date: 20040507
  Receipt Date: 20040428
  Transmission Date: 20050107
  Serious: Yes (Hospitalization)
  Sender: FDA-Public Use
  Company Number: US-JNJFOC-20040406381

PATIENT
  Age: 59 Year
  Sex: Female

DRUGS (4)
  1. DURAGESIC [Suspect]
     Indication: PAIN
     Dosage: 50 UG/HR, 1 IN 72 HOUR, TRANSDERMAL
     Route: 062
     Dates: start: 20031001
  2. TYLENOL W/ CODEINE [Concomitant]
  3. FERROUS GLUCONATE (FERROUS GLUCONATE) [Concomitant]
  4. NEXIUM [Concomitant]

REACTIONS (3)
  - JOINT SWELLING [None]
  - SWELLING FACE [None]
  - WEIGHT INCREASED [None]
